FAERS Safety Report 9291259 (Version 2)
Quarter: 2013Q4

REPORT INFORMATION
  Report Type: Spontaneous
  Country: DE (occurrence: DE)
  Receive Date: 20130515
  Receipt Date: 20131015
  Transmission Date: 20140711
  Serious: Yes (Other)
  Sender: FDA-Public Use
  Company Number: DE-ACTELION-A-US2013-83279

PATIENT
  Age: 77 Year
  Sex: Male

DRUGS (1)
  1. VENTAVIS BAYER SCHERING [Suspect]
     Indication: PRODUCT USED FOR UNKNOWN INDICATION
     Dosage: UNK
     Route: 065
     Dates: start: 201305

REACTIONS (1)
  - Deafness [Unknown]
